FAERS Safety Report 16672964 (Version 1)
Quarter: 2019Q3

REPORT INFORMATION
  Report Type: Spontaneous
  Country: DE (occurrence: DE)
  Receive Date: 20190806
  Receipt Date: 20190806
  Transmission Date: 20191004
  Serious: Yes (Other)
  Sender: FDA-Public Use
  Company Number: DE-009507513-1907DEU016579

PATIENT
  Age: 33 Year
  Sex: Female
  Weight: 50 kg

DRUGS (13)
  1. ALBUTEROL. [Concomitant]
     Active Substance: ALBUTEROL
     Indication: PRODUCT USED FOR UNKNOWN INDICATION
     Dosage: 1.3-15.3 GESTATIONAL WEEK
     Route: 055
     Dates: start: 20181002, end: 20190108
  2. TAVOR (LORAZEPAM) [Concomitant]
     Active Substance: LORAZEPAM
     Indication: RESTLESSNESS
     Dosage: 1.3-9.3 GESTATIONAL WEEK
     Route: 048
     Dates: start: 20181002, end: 20181127
  3. METOCLOPRAMIDE HYDROCHLORIDE. [Concomitant]
     Active Substance: METOCLOPRAMIDE HYDROCHLORIDE
     Indication: NAUSEA
     Dosage: 20 (MG/D) 2 SEPARATED DOSES; 0-10.1 GESTATIONAL WEEK
     Route: 048
     Dates: start: 20180922, end: 20181202
  4. PANTOPRAZOLE [Concomitant]
     Active Substance: PANTOPRAZOLE
     Indication: PRODUCT USED FOR UNKNOWN INDICATION
     Dosage: 40 (MG/D); 1.3-9.3 GESTATIONAL WEEK
     Route: 048
     Dates: start: 20181002, end: 20181127
  5. ONDANSETRON [Concomitant]
     Active Substance: ONDANSETRON
     Indication: NAUSEA
     Dosage: 8 (MG/D), 0-10.1 GESTATIONAL WEEK
     Route: 048
     Dates: start: 20180922, end: 20181202
  6. METHADONE HYDROCHLORIDE. [Concomitant]
     Active Substance: METHADONE HYDROCHLORIDE
     Indication: NAUSEA
     Dosage: 0.3-20.4 GESTATIONAL WEEK
     Route: 048
     Dates: start: 20180925, end: 20190213
  7. HALDOL [Concomitant]
     Active Substance: HALOPERIDOL
     Indication: ANXIETY
     Dosage: 1.3-9.3 GESTATIONAL WEEK
     Route: 048
     Dates: start: 20181002, end: 20181127
  8. VIGANTOLETTEN [Concomitant]
     Active Substance: CHOLECALCIFEROL
     Indication: PRODUCT USED FOR UNKNOWN INDICATION
     Dosage: 1.3-20.4 GESTATIONAL WEEK
     Route: 048
     Dates: start: 20181002, end: 20190213
  9. FOLIC ACID. [Concomitant]
     Active Substance: FOLIC ACID
     Indication: VITAMIN SUPPLEMENTATION
     Dosage: 19.6-19.6 GESTATIONAL WEEK
     Route: 048
     Dates: start: 20190208, end: 20190208
  10. DULCOLAX NOS [Concomitant]
     Active Substance: BISACODYL OR DOCUSATE SODIUM
     Indication: PRODUCT USED FOR UNKNOWN INDICATION
     Dosage: 1.3-20.4 GESTATIONAL WEEK
     Route: 048
     Dates: start: 20181002, end: 20190213
  11. ASCORBIC ACID (+) ZINC ACETATE [Concomitant]
     Indication: PRODUCT USED FOR UNKNOWN INDICATION
     Dosage: 1.3-15.3 GESTATIONAL WEEK
     Route: 048
     Dates: start: 20181002, end: 20190108
  12. TEMOZOLOMIDE. [Suspect]
     Active Substance: TEMOZOLOMIDE
     Indication: ANAPLASTIC OLIGODENDROGLIOMA
     Dosage: 320 (MG/D)/07/18 STARTING 6 CYCLES 5/28 DAYS, INITIAL 150MG/QM, THEN 200MG/QM, 0-10.1 GESTATIONAL WE
     Route: 048
     Dates: start: 20180922, end: 20181202
  13. L-THYROXIN [Concomitant]
     Active Substance: LEVOTHYROXINE SODIUM
     Indication: AUTOIMMUNE THYROIDITIS
     Dosage: 100 MICROGRAM, QD; 1.3-20.4 GESTATIONAL WEEK
     Route: 048
     Dates: start: 20181002, end: 20190213

REACTIONS (2)
  - Exposure during pregnancy [Unknown]
  - Oligohydramnios [Not Recovered/Not Resolved]
